FAERS Safety Report 5272186-0 (Version None)
Quarter: 2007Q1

REPORT INFORMATION
  Report Type: 
  Country: None (occurrence: None)
  Receive Date: 20070322
  Receipt Date: 20070307
  Transmission Date: 20070707
  Serious: No
  Sender: FDA-Public Use
  Company Number: PHBS2007BR04349

PATIENT
  Age: 73 Year
  Sex: Female
  Weight: 60 kg

DRUGS (4)
  1. TEGRETOL [Suspect]
     Indication: PETIT MAL EPILEPSY
     Dosage: 400 MG, TID
     Route: 048
  2. ALENDRONATE SODIUM [Concomitant]
     Dosage: 1 TABLET/DAY
     Route: 048
  3. ROCALTROL [Concomitant]
     Dosage: 1 TABLET/DAY
     Route: 048
  4. FOSAMAX [Concomitant]
     Dosage: 1 TABLET/DAY
     Route: 048

REACTIONS (3)
  - ABASIA [None]
  - HYPOAESTHESIA [None]
  - HYPOKINESIA [None]
